FAERS Safety Report 25016447 (Version 1)
Quarter: 2025Q1

REPORT INFORMATION
  Report Type: Spontaneous
  Country: IN (occurrence: IN)
  Receive Date: 20250227
  Receipt Date: 20250227
  Transmission Date: 20250409
  Serious: Yes (Hospitalization)
  Sender: STRIDES
  Company Number: IN-STRIDES ARCOLAB LIMITED-2025SP002419

PATIENT
  Age: 23 Year
  Sex: Male

DRUGS (2)
  1. OLANZAPINE [Suspect]
     Active Substance: OLANZAPINE
     Indication: Agitation
     Route: 065
  2. CHLORPHENIRAMINE [Concomitant]
     Active Substance: CHLORPHENIRAMINE
     Indication: Drug abuse
     Route: 042

REACTIONS (2)
  - Condition aggravated [Unknown]
  - Drug ineffective for unapproved indication [Unknown]
